FAERS Safety Report 6524403-4 (Version None)
Quarter: 2010Q1

REPORT INFORMATION
  Report Type: 
  Country: None (occurrence: None)
  Receive Date: 20100101
  Receipt Date: 20091230
  Transmission Date: 20100710
  Serious: Yes (Death, Other)
  Sender: FDA-Public Use
  Company Number: CHPA2009US24238

PATIENT
  Sex: Male

DRUGS (3)
  1. NODOZ (NCH) [Suspect]
     Dosage: UP TO 50 TABLETS, UNK
     Route: 048
  2. CLOZAPINE [Suspect]
     Indication: SCHIZOPHRENIA
     Dosage: 1000 MG, QD
     Dates: start: 20060902, end: 20070308
  3. DEPAKOTE [Concomitant]

REACTIONS (9)
  - CARDIAC ARREST [None]
  - COMPLETED SUICIDE [None]
  - CONVULSION [None]
  - DRUG ABUSE [None]
  - DRUG TOXICITY [None]
  - HAEMATEMESIS [None]
  - INTENTIONAL OVERDOSE [None]
  - RESUSCITATION [None]
  - TACHYCARDIA [None]
